FAERS Safety Report 13455244 (Version 2)
Quarter: 2018Q1

REPORT INFORMATION
  Report Type: Spontaneous
  Country: US (occurrence: US)
  Receive Date: 20170419
  Receipt Date: 20180201
  Transmission Date: 20180508
  Serious: No
  Sender: FDA-Public Use
  Company Number: US-ABBVIE-16P-163-1602265-00

PATIENT
  Age: 63 Year
  Sex: Male

DRUGS (5)
  1. ZOMETA [Suspect]
     Active Substance: ZOLEDRONIC ACID
     Indication: PRODUCT USED FOR UNKNOWN INDICATION
     Route: 065
  2. XTANDI [Suspect]
     Active Substance: ENZALUTAMIDE
     Route: 048
  3. LUPRON DEPOT [Suspect]
     Active Substance: LEUPROLIDE ACETATE
     Indication: PRODUCT USED FOR UNKNOWN INDICATION
     Route: 050
  4. XTANDI [Suspect]
     Active Substance: ENZALUTAMIDE
     Route: 048
  5. XTANDI [Suspect]
     Active Substance: ENZALUTAMIDE
     Indication: PROSTATE CANCER
     Route: 048
     Dates: start: 20160115

REACTIONS (9)
  - Vision blurred [Unknown]
  - Dizziness [Unknown]
  - Neuralgia [Unknown]
  - Neck pain [Recovered/Resolved]
  - Sleep disorder [Unknown]
  - Abdominal pain [Unknown]
  - Bone pain [Recovered/Resolved]
  - Headache [Recovered/Resolved]
  - Myalgia [Unknown]

NARRATIVE: CASE EVENT DATE: 20160204
